FAERS Safety Report 5391939-1 (Version None)
Quarter: 2007Q3

REPORT INFORMATION
  Report Type: 
  Country: None (occurrence: None)
  Receive Date: 20070720
  Receipt Date: 20070712
  Transmission Date: 20080115
  Serious: Yes (Other)
  Sender: FDA-Public Use
  Company Number: PHBS2007BR12051

PATIENT
  Age: 1 Year
  Sex: Female
  Weight: 10.1 kg

DRUGS (3)
  1. AMOXIL [Concomitant]
     Indication: INFLAMMATION
     Route: 048
  2. LEUCOGEN [Concomitant]
     Dosage: UNK, BID
     Route: 048
  3. ZADITEN [Suspect]
     Indication: BRONCHITIS
     Dosage: 20 DRP, QD
     Route: 048
     Dates: start: 20070710

REACTIONS (4)
  - DECREASED APPETITE [None]
  - MALAISE [None]
  - PROSTRATION [None]
  - SOMNOLENCE [None]
